FAERS Safety Report 12664035 (Version 2)
Quarter: 2016Q3

REPORT INFORMATION
  Report Type: Spontaneous
  Country: US (occurrence: US)
  Receive Date: 20160818
  Receipt Date: 20160822
  Transmission Date: 20161109
  Serious: Yes (Hospitalization)
  Sender: FDA-Public Use
  Company Number: US-JNJFOC-20160808415

PATIENT
  Age: 2 Decade
  Sex: Male
  Weight: 59 kg

DRUGS (1)
  1. XARELTO [Suspect]
     Active Substance: RIVAROXABAN
     Indication: DEEP VEIN THROMBOSIS
     Route: 048
     Dates: start: 201605

REACTIONS (8)
  - Activated partial thromboplastin time shortened [Unknown]
  - Drug administered to patient of inappropriate age [Unknown]
  - Pulmonary embolism [Unknown]
  - Chest pain [Unknown]
  - Anticoagulation drug level increased [Unknown]
  - International normalised ratio increased [Unknown]
  - Off label use [Unknown]
  - Treatment noncompliance [Unknown]

NARRATIVE: CASE EVENT DATE: 2016
